FAERS Safety Report 25578257 (Version 1)
Quarter: 2025Q3

REPORT INFORMATION
  Report Type: Spontaneous
  Country: US (occurrence: US)
  Receive Date: 20250718
  Receipt Date: 20250718
  Transmission Date: 20251021
  Serious: No
  Sender: EISAI
  Company Number: US-Eisai-EC-2025-193047

PATIENT
  Age: 73 Year
  Sex: Female

DRUGS (5)
  1. LECANEMAB [Suspect]
     Active Substance: LECANEMAB
     Indication: Dementia Alzheimer^s type
  2. DONEPEZIL [Concomitant]
     Active Substance: DONEPEZIL
  3. AMLODIPINE [Concomitant]
     Active Substance: AMLODIPINE BESYLATE
  4. HYDROCHLOROTHIAZIDE [Concomitant]
     Active Substance: HYDROCHLOROTHIAZIDE
  5. MESALAMINE [Concomitant]
     Active Substance: MESALAMINE

REACTIONS (3)
  - Cerebral cavernous malformation [Recovering/Resolving]
  - Fatigue [Unknown]
  - Brain fog [Unknown]
